FAERS Safety Report 8121171-X (Version None)
Quarter: 2012Q1

REPORT INFORMATION
  Report Type: 
  Country: None (occurrence: None)
  Receive Date: 20120208
  Receipt Date: 20120126
  Transmission Date: 20120608
  Serious: Yes (Other)
  Sender: FDA-Public Use
  Company Number: FR-SANOFI-AVENTIS-2012SA007763

PATIENT
  Age: 70 Year
  Sex: Female
  Weight: 66 kg

DRUGS (13)
  1. LASIX [Suspect]
     Dosage: ONE DASAGE FORM IN THE MORNING
     Route: 065
     Dates: start: 20030101, end: 20110704
  2. RAMIPRIL [Suspect]
     Route: 065
     Dates: start: 20030101, end: 20110704
  3. TERCIAN [Suspect]
     Dosage: ONE DOSAGE FORM IN THE EVENING
     Route: 065
     Dates: start: 20010101, end: 20110704
  4. ZYPREXA [Suspect]
     Dosage: ONE DOSAGE FORM IN THE MORNING AND ONE IN THE EVENING.
     Route: 065
     Dates: start: 20010101
  5. MABTHERA [Suspect]
     Route: 065
     Dates: start: 20100101, end: 20110501
  6. BACTRIM [Suspect]
     Dosage: ONE DOSAGE FORM IN THE MORNING
     Route: 065
     Dates: start: 20110627, end: 20110702
  7. CITALOPRAM [Suspect]
     Dosage: 2 DOSAGE FORM IN THE MORING AND ONE AT NOON.
     Route: 065
     Dates: start: 20050101, end: 20110704
  8. MIRTAZAPINE [Suspect]
     Indication: BIPOLAR DISORDER
     Route: 048
     Dates: start: 20030101, end: 20110702
  9. FLUDARABINE PHOSPHATE [Suspect]
     Route: 065
     Dates: start: 20100101, end: 20110501
  10. LAMOTRIGINE [Suspect]
     Dosage: 3 DF IN MORNING AND 2 DF IN EVENING
     Route: 065
     Dates: start: 20050101
  11. LOXAPINE HCL [Suspect]
     Dosage: 10 DROPS IN MORNING, NOON AND 20 DROPS IN EVENING
     Route: 065
     Dates: start: 20110629, end: 20110704
  12. CYCLOPHOSPHAMIDE [Suspect]
     Route: 065
     Dates: start: 20100101, end: 20110501
  13. VFEND [Suspect]
     Indication: ASPERGILLOSIS
     Route: 065
     Dates: start: 20110628, end: 20110702

REACTIONS (1)
  - CONVULSION [None]
